FAERS Safety Report 5711189-6 (Version None)
Quarter: 2008Q2

REPORT INFORMATION
  Report Type: 
  Country: None (occurrence: None)
  Receive Date: 20080421
  Receipt Date: 20080414
  Transmission Date: 20081010
  Serious: Yes (Hospitalization, Other)
  Sender: FDA-Public Use
  Company Number: ES-AVENTIS-200811622EU

PATIENT
  Age: 57 Year
  Sex: Female

DRUGS (5)
  1. SEGURIL                            /00032601/ [Suspect]
     Route: 048
     Dates: end: 20070910
  2. ALDACTONE [Suspect]
     Route: 048
     Dates: start: 20070801, end: 20070903
  3. TARDYFERON                         /00023503/ [Concomitant]
     Route: 048
  4. ALDACTONE [Concomitant]
     Route: 048
     Dates: start: 20070904, end: 20070910
  5. DUPHALAC                           /00163401/ [Concomitant]
     Route: 048

REACTIONS (5)
  - DRUG INTERACTION [None]
  - HEPATIC ENCEPHALOPATHY [None]
  - HYPERKALAEMIA [None]
  - HYPONATRAEMIA [None]
  - RENAL FAILURE ACUTE [None]
